FAERS Safety Report 11220847 (Version 1)
Quarter: 2015Q2

REPORT INFORMATION
  Report Type: Spontaneous
  Country: US (occurrence: None)
  Receive Date: 20150625
  Receipt Date: 20150625
  Transmission Date: 20150821
  Serious: No
  Sender: FDA-Public Use
  Company Number: None

PATIENT
  Age: 63 Year
  Sex: Male

DRUGS (1)
  1. CAPECITABINE 500MG TABLETS TEVA [Suspect]
     Active Substance: CAPECITABINE
     Indication: RECTAL CANCER
     Dosage: 2000 MG, TWICE DAILY, ORAL
     Route: 048
     Dates: start: 20140801

REACTIONS (4)
  - Stoma site reaction [None]
  - Stoma site pain [None]
  - Swelling [None]
  - Tenderness [None]

NARRATIVE: CASE EVENT DATE: 20150617
